FAERS Safety Report 7677225-5 (Version None)
Quarter: 2011Q3

REPORT INFORMATION
  Report Type: 
  Country: None (occurrence: None)
  Receive Date: 20110811
  Receipt Date: 20110808
  Transmission Date: 20111222
  Serious: Yes (Other)
  Sender: FDA-Public Use
  Company Number: US-TEVA-295468USA

PATIENT
  Age: 40 Year
  Sex: Female

DRUGS (2)
  1. FENFLURAMINE [Interacting]
  2. PHENTERMINE [Suspect]

REACTIONS (2)
  - VASCULITIS [None]
  - DRUG INTERACTION [None]
